FAERS Safety Report 6977850-0 (Version None)
Quarter: 2010Q3

REPORT INFORMATION
  Report Type: 
  Country: None (occurrence: None)
  Receive Date: 20100913
  Receipt Date: 20100904
  Transmission Date: 20110219
  Serious: No
  Sender: FDA-Public Use
  Company Number: US-BIOGENIDEC-2010BI031345

PATIENT
  Age: 52 Year
  Sex: Female

DRUGS (2)
  1. TYSABRI [Suspect]
     Indication: MULTIPLE SCLEROSIS
     Route: 042
     Dates: start: 20070307, end: 20070702
  2. TYSABRI [Suspect]
     Route: 042
     Dates: start: 20091130

REACTIONS (3)
  - HEADACHE [None]
  - PAIN [None]
  - PAIN IN EXTREMITY [None]
